FAERS Safety Report 9554493 (Version 1)
Quarter: 2013Q3

REPORT INFORMATION
  Report Type: Spontaneous
  Country: IT (occurrence: IT)
  Receive Date: 20130925
  Receipt Date: 20130925
  Transmission Date: 20140515
  Serious: Yes (Other)
  Sender: FDA-Public Use
  Company Number: IT-GILEAD-2013-0083880

PATIENT
  Sex: Male

DRUGS (1)
  1. TRUVADA [Suspect]
     Indication: HIV INFECTION
     Dosage: UNK
     Dates: start: 2010

REACTIONS (2)
  - Leukopenia [Unknown]
  - Unevaluable event [Unknown]
